FAERS Safety Report 16661187 (Version 1)
Quarter: 2019Q3

REPORT INFORMATION
  Report Type: Spontaneous
  Country: US (occurrence: US)
  Receive Date: 20190801
  Receipt Date: 20190801
  Transmission Date: 20191004
  Serious: No
  Sender: FDA-Public Use
  Company Number: None

PATIENT
  Age: 68 Year
  Sex: Male

DRUGS (2)
  1. GONIOTAIRE [Suspect]
     Active Substance: HYPROMELLOSE 2906 (4000 MPA.S)
     Indication: EYE OPERATION
     Route: 047
  2. GONIOSOFT [Suspect]
     Active Substance: HYPROMELLOSES

REACTIONS (2)
  - Endophthalmitis [None]
  - Fungal infection [None]

NARRATIVE: CASE EVENT DATE: 20190717
